FAERS Safety Report 23110519 (Version 1)
Quarter: 2023Q4

REPORT INFORMATION
  Report Type: Spontaneous
  Country: CA (occurrence: CA)
  Receive Date: 20231026
  Receipt Date: 20231026
  Transmission Date: 20240110
  Serious: Yes (Hospitalization, Other)
  Sender: FDA-Public Use
  Company Number: CA-MYLANLABS-2023M1112925

PATIENT
  Age: 78 Year
  Sex: Male

DRUGS (7)
  1. TRASTUZUMAB [Suspect]
     Active Substance: TRASTUZUMAB
     Indication: Adenocarcinoma gastric
     Dosage: UNK
     Route: 065
  2. CAPECITABINE [Suspect]
     Active Substance: CAPECITABINE
     Indication: Adenocarcinoma gastric
     Dosage: UNK
     Route: 048
  3. CARBOPLATIN [Suspect]
     Active Substance: CARBOPLATIN
     Indication: Adenocarcinoma gastric
     Dosage: UNK
     Route: 065
  4. RALTITREXED [Suspect]
     Active Substance: RALTITREXED
     Indication: Adenocarcinoma gastric
     Dosage: UNK
     Route: 065
  5. CISPLATIN [Concomitant]
     Active Substance: CISPLATIN
     Dosage: UNK
     Route: 042
  6. NITROGLYCERIN [Concomitant]
     Active Substance: NITROGLYCERIN
     Dosage: UNK
     Route: 065
  7. PRIMOVIST [Concomitant]
     Active Substance: GADOXETATE DISODIUM
     Dosage: UNK
     Route: 065

REACTIONS (6)
  - Acute myocardial infarction [Unknown]
  - Disease progression [Unknown]
  - Hepatic lesion [Unknown]
  - Myelosuppression [Unknown]
  - Fatigue [Unknown]
  - Anaemia [Unknown]
